FAERS Safety Report 6385768-X (Version None)
Quarter: 2009Q4

REPORT INFORMATION
  Report Type: 
  Country: None (occurrence: None)
  Receive Date: 20091002
  Receipt Date: 20081002
  Transmission Date: 20100525
  Serious: No
  Sender: FDA-Public Use
  Company Number: US-ASTRAZENECA-2008UW21508

PATIENT
  Age: 53 Year
  Sex: Female

DRUGS (3)
  1. ARIMIDEX [Suspect]
     Indication: BREAST CANCER FEMALE
     Route: 048
     Dates: start: 20070901, end: 20071201
  2. FOSAMAX PLUS D [Concomitant]
     Indication: OSTEOPOROSIS
  3. CALCIUM W/ VITAMIN D [Concomitant]

REACTIONS (4)
  - FALL [None]
  - ILL-DEFINED DISORDER [None]
  - JOINT STIFFNESS [None]
  - MENOPAUSE [None]
